FAERS Safety Report 5176768-6 (Version None)
Quarter: 2006Q4

REPORT INFORMATION
  Report Type: 
  Country: None (occurrence: None)
  Receive Date: 20061218
  Receipt Date: 20060821
  Transmission Date: 20070319
  Serious: Yes (Death, Hospitalization)
  Sender: FDA-Public Use
  Company Number: FR-BAYER-200610781BFR

PATIENT
  Age: 60 Year
  Sex: Male
  Weight: 72 kg

DRUGS (9)
  1. SORAFENIB [Suspect]
     Indication: RENAL CELL CARCINOMA STAGE UNSPECIFIED
     Dosage: TOTAL DAILY DOSE: 800 MG  UNIT DOSE: 200 MG
     Route: 048
     Dates: start: 20060407, end: 20060515
  2. SORAFENIB [Suspect]
     Dosage: TOTAL DAILY DOSE: 400 MG  UNIT DOSE: 200 MG
     Route: 048
     Dates: start: 20060619, end: 20060710
  3. CORDARONE [Concomitant]
     Indication: ARRHYTHMIA
     Route: 048
     Dates: start: 20030101
  4. LASIX [Concomitant]
     Indication: HYPERTENSION
     Route: 048
     Dates: start: 20050101
  5. TOPALGIC [Concomitant]
     Indication: PAIN
     Route: 048
     Dates: start: 20060208
  6. FORLAX [Concomitant]
     Indication: CONSTIPATION
     Route: 048
     Dates: start: 20060618
  7. CIPROFLOXACIN [Concomitant]
     Indication: UNEVALUABLE EVENT
     Route: 065
     Dates: start: 20060618
  8. DAFALGAN [Concomitant]
     Indication: PAIN
     Route: 048
     Dates: start: 20060618
  9. PRIMPERAN TAB [Concomitant]
     Indication: NAUSEA
     Route: 048
     Dates: start: 20060618

REACTIONS (3)
  - ASTHENIA [None]
  - DYSPNOEA [None]
  - GENERAL PHYSICAL HEALTH DETERIORATION [None]
